FAERS Safety Report 22079845 (Version 1)
Quarter: 2023Q1

REPORT INFORMATION
  Report Type: Report from Study
  Country: US (occurrence: US)
  Receive Date: 20230309
  Receipt Date: 20230309
  Transmission Date: 20230418
  Serious: Yes (Other)
  Sender: FDA-Public Use
  Company Number: US-ABBVIE-4327154

PATIENT
  Sex: Female

DRUGS (1)
  1. RINVOQ [Suspect]
     Active Substance: UPADACITINIB
     Indication: Product used for unknown indication
     Route: 048
     Dates: start: 20200820

REACTIONS (5)
  - Rectal cancer [Not Recovered/Not Resolved]
  - Haemorrhoids [Unknown]
  - Skin papilloma [Unknown]
  - Urinary tract infection [Unknown]
  - Immunodeficiency [Unknown]
